FAERS Safety Report 10055064 (Version 1)
Quarter: 2014Q2

REPORT INFORMATION
  Report Type: Spontaneous
  Country: US (occurrence: US)
  Receive Date: 20140402
  Receipt Date: 20140402
  Transmission Date: 20141212
  Serious: No
  Sender: FDA-Public Use
  Company Number: US-SA-2014SA001962

PATIENT
  Age: 59 Year
  Sex: Female

DRUGS (9)
  1. AUBAGIO [Suspect]
     Indication: MULTIPLE SCLEROSIS
     Route: 048
     Dates: start: 20130617
  2. SOMA [Concomitant]
     Dosage: STRENGTH:350 MG
  3. NEURONTIN [Concomitant]
     Dosage: STRENGTH: 100 MG
  4. LORTAB [Concomitant]
     Dosage: STRENGTH: 7.5/500
  5. AMANTADINE [Concomitant]
     Dosage: STRENGTH: 100 MG
  6. LISINOPRIL [Concomitant]
     Dosage: STRENGTH: 20 MG
  7. FLEXERIL [Concomitant]
     Dosage: STRENGTH: 10 MG
  8. VALTREX [Concomitant]
     Dosage: STRENGTH: 500 MG CAPLET
  9. MACROBID [Concomitant]
     Dosage: STRENGTH: 100 MG

REACTIONS (2)
  - Alopecia [Unknown]
  - Drug dose omission [Unknown]
